FAERS Safety Report 18441309 (Version 4)
Quarter: 2022Q2

REPORT INFORMATION
  Report Type: Spontaneous
  Country: US (occurrence: US)
  Receive Date: 20201029
  Receipt Date: 20220503
  Transmission Date: 20220720
  Serious: No
  Sender: FDA-Public Use
  Company Number: US-PFIZER INC-2020417061

PATIENT
  Age: 75 Year
  Sex: Female
  Weight: 79.38 kg

DRUGS (3)
  1. LYRICA [Suspect]
     Active Substance: PREGABALIN
     Indication: Pain
     Dosage: 200 MG, 3X/DAY
  2. LYRICA [Suspect]
     Active Substance: PREGABALIN
     Indication: Pruritus
     Dosage: 350 MG, 2X/DAY
  3. LYRICA [Suspect]
     Active Substance: PREGABALIN
     Indication: Post herpetic neuralgia
     Dosage: 330 MG, 2X/DAY

REACTIONS (6)
  - Drug ineffective [Unknown]
  - Pain [Unknown]
  - Confusional state [Unknown]
  - Weight increased [Unknown]
  - Pruritus [Unknown]
  - Herpes zoster [Unknown]
